FAERS Safety Report 10394528 (Version 6)
Quarter: 2016Q2

REPORT INFORMATION
  Report Type: Report from Study
  Country: DK (occurrence: DK)
  Receive Date: 20140819
  Receipt Date: 20160503
  Transmission Date: 20160815
  Serious: Yes (Hospitalization, Other)
  Sender: FDA-Public Use
  Company Number: PHHO2014DK001819

PATIENT
  Age: 53 Year
  Sex: Male
  Weight: 108 kg

DRUGS (3)
  1. BURINEX [Concomitant]
     Active Substance: BUMETANIDE
     Dosage: 1 MG, BID
     Route: 048
     Dates: start: 20111115
  2. METFORMIN [Suspect]
     Active Substance: METFORMIN HYDROCHLORIDE
     Indication: PRODUCT USED FOR UNKNOWN INDICATION
     Dosage: 500 MG, QD
     Route: 048
     Dates: start: 20110202, end: 20131114
  3. ALISKIREN [Suspect]
     Active Substance: ALISKIREN
     Indication: CARDIAC FAILURE
     Dosage: 300 MG, UNK
     Route: 048
     Dates: start: 20110915, end: 20130220

REACTIONS (5)
  - Hypokalaemia [Recovering/Resolving]
  - Hyponatraemia [Recovered/Resolved]
  - Syncope [Recovering/Resolving]
  - Hypovolaemia [Recovering/Resolving]
  - Renal failure [Unknown]

NARRATIVE: CASE EVENT DATE: 20130301
